FAERS Safety Report 5967872-0 (Version None)
Quarter: 2008Q4

REPORT INFORMATION
  Report Type: 
  Country: None (occurrence: None)
  Receive Date: 20081126
  Receipt Date: 20081117
  Transmission Date: 20090506
  Serious: No
  Sender: FDA-Public Use
  Company Number: BR-ROCHE-597969

PATIENT
  Age: 25 Year
  Sex: Female
  Weight: 50 kg

DRUGS (3)
  1. ROACUTAN [Suspect]
     Indication: DRUG USE FOR UNKNOWN INDICATION
     Route: 048
     Dates: start: 20080101, end: 20080701
  2. ROACUTAN [Suspect]
     Dosage: ONE TABLET ON ONE DAY AND 2 TABLETS ON THE SECOND DAY
     Route: 048
     Dates: start: 20080801, end: 20081026
  3. DIANE 35 [Concomitant]
     Indication: CONTRACEPTION
     Route: 048
     Dates: start: 20060101, end: 20080801

REACTIONS (2)
  - NO ADVERSE EVENT [None]
  - PREGNANCY [None]
